FAERS Safety Report 6298013-0 (Version None)
Quarter: 2009Q3

REPORT INFORMATION
  Report Type: 
  Country: None (occurrence: None)
  Receive Date: 20090805
  Receipt Date: 20090727
  Transmission Date: 20100115
  Serious: Yes (Other)
  Sender: FDA-Public Use
  Company Number: DE-JNJFOC-20090404421

PATIENT
  Sex: Male
  Weight: 90 kg

DRUGS (1)
  1. TRAMADOL HCL [Suspect]
     Indication: PAIN
     Route: 065

REACTIONS (3)
  - ANGIOEDEMA [None]
  - ERYTHEMA [None]
  - URTICARIA [None]
